FAERS Safety Report 20152457 (Version 6)
Quarter: 2024Q1

REPORT INFORMATION
  Report Type: Report from Study
  Country: KR (occurrence: KR)
  Receive Date: 20211206
  Receipt Date: 20240328
  Transmission Date: 20240409
  Serious: Yes (Other)
  Sender: FDA-Public Use
  Company Number: KR-TAKEDA-2021TUS076445

PATIENT
  Sex: Male

DRUGS (5)
  1. BRIGATINIB [Suspect]
     Active Substance: BRIGATINIB
     Indication: Non-small cell lung cancer
     Dosage: 90 MILLIGRAM, QD
     Route: 065
     Dates: start: 20210406, end: 20210610
  2. BRIGATINIB [Suspect]
     Active Substance: BRIGATINIB
     Dosage: 180 MILLIGRAM, QD
     Route: 065
     Dates: start: 20210611
  3. DIOVAN [Concomitant]
     Active Substance: VALSARTAN
     Indication: Hypertension
     Dosage: 40 MILLIGRAM, QD
     Route: 048
  4. DIETARY SUPPLEMENT\HERBALS\MILK THISTLE [Concomitant]
     Active Substance: MILK THISTLE
     Indication: Aspartate aminotransferase increased
     Dosage: 280 MILLIGRAM, QD
     Route: 048
     Dates: start: 20210506
  5. Godex [Concomitant]
     Indication: Aspartate aminotransferase increased
     Dosage: UNK, QD
     Route: 048
     Dates: start: 20210506

REACTIONS (1)
  - Neutropenia [Recovered/Resolved]

NARRATIVE: CASE EVENT DATE: 20210413
